FAERS Safety Report 5745226-X (Version None)
Quarter: 2008Q2

REPORT INFORMATION
  Report Type: 
  Country: None (occurrence: None)
  Receive Date: 20080521
  Receipt Date: 20080520
  Transmission Date: 20081010
  Serious: Yes (Hospitalization)
  Sender: FDA-Public Use
  Company Number: B0511575A

PATIENT
  Age: 35 Year
  Sex: Female
  Weight: 42 kg

DRUGS (7)
  1. PAXIL [Suspect]
     Indication: ANOREXIA NERVOSA
     Dosage: 20MG PER DAY
     Route: 048
     Dates: end: 20080305
  2. ZYPREXA [Suspect]
     Indication: ANOREXIA NERVOSA
     Dosage: 3MG PER DAY
     Route: 048
     Dates: end: 20080305
  3. CRESTOR [Suspect]
     Dosage: 2.5MG PER DAY
     Route: 048
     Dates: start: 20080128, end: 20080305
  4. DORAL [Concomitant]
     Indication: INSOMNIA
     Dosage: 15MG PER DAY
     Route: 048
     Dates: start: 20080203
  5. SILECE [Concomitant]
     Indication: INSOMNIA
     Dosage: 2MG PER DAY
     Route: 048
     Dates: start: 20071115
  6. MYSLEE [Concomitant]
     Indication: INSOMNIA
     Dosage: 10MG PER DAY
     Route: 048
     Dates: start: 20070905
  7. FUROSEMIDE [Concomitant]
     Dates: start: 20080305

REACTIONS (2)
  - BLOOD CREATINE PHOSPHOKINASE INCREASED [None]
  - CHROMATURIA [None]
